FAERS Safety Report 8142381-1 (Version None)
Quarter: 2012Q1

REPORT INFORMATION
  Report Type: 
  Country: None (occurrence: None)
  Receive Date: 20120216
  Receipt Date: 20120210
  Transmission Date: 20120608
  Serious: Yes (Hospitalization)
  Sender: FDA-Public Use
  Company Number: PHHY2012HU007991

PATIENT

DRUGS (2)
  1. ACTONEL TRIO [Suspect]
     Dosage: UNK
     Dates: start: 20111125
  2. ZOLEDRONOC ACID [Suspect]
     Indication: OSTEOPOROSIS
     Dosage: 5 MG, YEARLY
     Route: 042
     Dates: start: 20091202

REACTIONS (3)
  - DEMENTIA ALZHEIMER'S TYPE [None]
  - MENTAL IMPAIRMENT [None]
  - DIZZINESS [None]
